FAERS Safety Report 8547951 (Version 2)
Quarter: 2013Q2

REPORT INFORMATION
  Report Type: Report from Study
  Country: US (occurrence: US)
  Receive Date: 20120504
  Receipt Date: 20130610
  Transmission Date: 20140414
  Serious: Yes (Hospitalization, Other)
  Sender: FDA-Public Use
  Company Number: US-ACTELION-A-US2006-13397

PATIENT
  Age: 46 Year
  Sex: Female

DRUGS (1)
  1. TRACLEER [Suspect]
     Indication: PULMONARY ARTERIAL HYPERTENSION
     Route: 048
     Dates: start: 200604

REACTIONS (15)
  - Blood potassium decreased [Unknown]
  - Pneumonia [Unknown]
  - Dyspnoea [Unknown]
  - Catheterisation cardiac [Unknown]
  - Road traffic accident [Unknown]
  - Blood electrolytes decreased [Unknown]
  - Respiratory tract infection [Unknown]
  - Musculoskeletal discomfort [Unknown]
  - Muscle spasms [Unknown]
  - Myalgia [Unknown]
  - Asthenia [Unknown]
  - Local swelling [Unknown]
  - Fatigue [Unknown]
  - Hypoaesthesia [Unknown]
  - Spinal column injury [Unknown]
